FAERS Safety Report 6068323-0 (Version None)
Quarter: 2009Q1

REPORT INFORMATION
  Report Type: 
  Country: None (occurrence: None)
  Receive Date: 20090206
  Receipt Date: 20090127
  Transmission Date: 20090719
  Serious: Yes (Other)
  Sender: FDA-Public Use
  Company Number: US-JNJFOC-20090106756

PATIENT
  Sex: Female
  Weight: 63.5 kg

DRUGS (2)
  1. DOXIL [Suspect]
     Indication: HEPATIC NEOPLASM MALIGNANT
     Dosage: 5 CYCLES
     Route: 042
  2. NEULASTA [Concomitant]
     Indication: WHITE BLOOD CELL COUNT
     Route: 065

REACTIONS (4)
  - DIPLOPIA [None]
  - DIZZINESS [None]
  - RASH [None]
  - RETINAL HAEMORRHAGE [None]
